FAERS Safety Report 5601371-0 (Version None)
Quarter: 2008Q1

REPORT INFORMATION
  Report Type: 
  Country: None (occurrence: None)
  Receive Date: 20080118
  Receipt Date: 20080102
  Transmission Date: 20080703
  Serious: Yes (Hospitalization, Other)
  Sender: FDA-Public Use
  Company Number: 2008US000018

PATIENT
  Sex: Female

DRUGS (10)
  1. PROGRAF [Suspect]
     Indication: RENAL TRANSPLANT
     Dosage: 1 MG, BID, ORAL
     Route: 048
     Dates: start: 20061001
  2. CELLCEPT [Concomitant]
  3. PREDNISONE TAB [Concomitant]
  4. NEXIUM [Concomitant]
  5. ZOCOR [Concomitant]
  6. LEXAPRO [Concomitant]
  7. XANAX (ALPRZOLAM) [Concomitant]
  8. ATENOLOL [Concomitant]
  9. GLUCOSAMINE W/CHONDROITIN SULFATE (GLUCOSAMINE, CHONDROITIN SULFATE) [Concomitant]
  10. OSCAL  500-D (COLECALCIFEROL, CALCIUM) [Concomitant]

REACTIONS (15)
  - ANXIETY [None]
  - ATRIAL FIBRILLATION [None]
  - CARDIAC FLUTTER [None]
  - DISTURBANCE IN ATTENTION [None]
  - DIZZINESS [None]
  - DYSPNOEA [None]
  - FATIGUE [None]
  - JOINT SWELLING [None]
  - MUSCULAR WEAKNESS [None]
  - NERVOUSNESS [None]
  - PALPITATIONS [None]
  - PARAESTHESIA [None]
  - RASH [None]
  - SENSATION OF HEAVINESS [None]
  - SENSORY DISTURBANCE [None]
